FAERS Safety Report 5863956-6 (Version None)
Quarter: 2008Q3

REPORT INFORMATION
  Report Type: 
  Country: None (occurrence: None)
  Receive Date: 20080829
  Receipt Date: 20080826
  Transmission Date: 20090109
  Serious: Yes (Hospitalization)
  Sender: FDA-Public Use
  Company Number: FR-BRISTOL-MYERS SQUIBB COMPANY-14317473

PATIENT
  Age: 64 Year
  Sex: Male
  Weight: 46 kg

DRUGS (6)
  1. AMIKLIN INJ [Suspect]
     Indication: MYCOBACTERIAL INFECTION
     Route: 042
     Dates: start: 20080415, end: 20080521
  2. RIFADIN [Suspect]
     Indication: MYCOBACTERIAL INFECTION
     Route: 048
     Dates: start: 20080415, end: 20080521
  3. CLARITHROMYCIN [Suspect]
     Indication: MYCOBACTERIAL INFECTION
     Route: 048
     Dates: start: 20080415, end: 20080521
  4. MYAMBUTOL [Suspect]
     Indication: MYCOBACTERIAL INFECTION
     Route: 048
     Dates: start: 20080415, end: 20080521
  5. TAZOCILLINE [Suspect]
     Indication: LUNG INFECTION PSEUDOMONAL
     Route: 042
     Dates: start: 20080517, end: 20080518
  6. AMIKACIN [Suspect]
     Indication: LUNG INFECTION PSEUDOMONAL

REACTIONS (4)
  - EOSINOPHILIA [None]
  - PRURITUS [None]
  - PYREXIA [None]
  - RASH ERYTHEMATOUS [None]
